FAERS Safety Report 10903131 (Version 1)
Quarter: 2015Q1

REPORT INFORMATION
  Report Type: Spontaneous
  Country: US (occurrence: US)
  Receive Date: 20150311
  Receipt Date: 20150311
  Transmission Date: 20150721
  Serious: Yes (Hospitalization, Other)
  Sender: FDA-Public Use
  Company Number: US-AUROBINDO-AUR-APL-2015-01908

PATIENT
  Age: 95 Year
  Sex: Male

DRUGS (1)
  1. GLYCOPYRROLATE. [Suspect]
     Active Substance: GLYCOPYRROLATE
     Indication: APTYALISM
     Dosage: UNK
     Route: 065

REACTIONS (4)
  - Constipation [Unknown]
  - Urinary retention [Unknown]
  - Haematuria [Unknown]
  - Hydronephrosis [Unknown]
